FAERS Safety Report 7628622-5 (Version None)
Quarter: 2011Q3

REPORT INFORMATION
  Report Type: 
  Country: None (occurrence: None)
  Receive Date: 20110721
  Receipt Date: 20110721
  Transmission Date: 20111222
  Serious: Yes (Hospitalization)
  Sender: FDA-Public Use
  Company Number: None

PATIENT
  Sex: Male
  Weight: 34.0198 kg

DRUGS (1)
  1. SCOPOLAMINE [Suspect]
     Route: 062

REACTIONS (11)
  - COORDINATION ABNORMAL [None]
  - TIC [None]
  - OCULAR HYPERAEMIA [None]
  - MYDRIASIS [None]
  - DYSKINESIA [None]
  - VISUAL IMPAIRMENT [None]
  - MEMORY IMPAIRMENT [None]
  - PALPITATIONS [None]
  - RESTLESSNESS [None]
  - THIRST [None]
  - AGITATION [None]
